FAERS Safety Report 10097081 (Version 1)
Quarter: 2014Q2

REPORT INFORMATION
  Report Type: Spontaneous
  Country: US (occurrence: US)
  Receive Date: 20140422
  Receipt Date: 20140422
  Transmission Date: 20141212
  Serious: No
  Sender: FDA-Public Use
  Company Number: US-GILEAD-2012-0065855

PATIENT
  Age: 82 Year
  Sex: Female

DRUGS (12)
  1. LETAIRIS [Suspect]
     Indication: PULMONARY HYPERTENSION
     Dosage: 5 MG, QD
     Route: 048
     Dates: start: 20121114
  2. DIOVAN [Concomitant]
     Indication: UNEVALUABLE EVENT
     Dosage: 50 MG, QD
     Dates: start: 20080101
  3. ATENOLOL [Concomitant]
     Indication: UNEVALUABLE EVENT
     Dosage: 50 MG, UNK
     Dates: start: 20080101
  4. ATORVASTATIN [Concomitant]
     Indication: BLOOD CHOLESTEROL
     Dosage: 40 MG, UNK
     Dates: start: 20080101
  5. METOLAZONE [Concomitant]
     Indication: UNEVALUABLE EVENT
     Dosage: 2.5 MG, UNK
     Dates: start: 20080101
  6. CARTIA                             /00002701/ [Concomitant]
     Indication: UNEVALUABLE EVENT
     Dosage: 360 MG, QD
     Dates: start: 20080101
  7. POTASSIUM CHLORIDE [Concomitant]
     Indication: BLOOD POTASSIUM DECREASED
     Dosage: 10 MEQ, BID
     Dates: start: 20080101
  8. ANASTROZOLE [Concomitant]
     Indication: UNEVALUABLE EVENT
     Dosage: 1 MG, QD
     Dates: start: 20080101
  9. PRIMIDONE [Concomitant]
     Indication: DRUG THERAPY
     Dosage: 50 MG, TID
     Dates: start: 20080101
  10. COUMADIN                           /00014802/ [Concomitant]
     Indication: ANTICOAGULANT THERAPY
     Dosage: 5 MG, QD
     Dates: start: 20080101
  11. FUROSEMIDE [Concomitant]
     Indication: UNEVALUABLE EVENT
     Dosage: 80 MG, QD
     Dates: start: 20080101
  12. CENTRUM SILVER                     /02363801/ [Concomitant]
     Indication: SUPPLEMENTATION THERAPY
     Dosage: 1 MG, QD
     Dates: start: 20080101

REACTIONS (1)
  - Oedema peripheral [Not Recovered/Not Resolved]
